FAERS Safety Report 11990584 (Version 3)
Quarter: 2016Q4

REPORT INFORMATION
  Report Type: Spontaneous
  Country: US (occurrence: US)
  Receive Date: 20160202
  Receipt Date: 20161202
  Transmission Date: 20170206
  Serious: Yes (Other)
  Sender: FDA-Public Use
  Company Number: US-ELI_LILLY_AND_COMPANY-US201601009677

PATIENT
  Age: 49 Year
  Sex: Male

DRUGS (7)
  1. TRAZODONE [Concomitant]
     Active Substance: TRAZODONE HYDROCHLORIDE
     Dosage: 50 MG, QD
     Route: 048
  2. CYMBALTA [Suspect]
     Active Substance: DULOXETINE HYDROCHLORIDE
     Indication: DEPRESSION
     Dosage: 60 MG, QD
     Route: 048
     Dates: start: 20121211, end: 20140408
  3. LATUDA [Concomitant]
     Active Substance: LURASIDONE HYDROCHLORIDE
     Dosage: UNK, UNKNOWN
     Route: 065
  4. SEROQUEL [Concomitant]
     Active Substance: QUETIAPINE FUMARATE
     Dosage: 25 MG, TID
     Route: 065
  5. LAMICTAL [Concomitant]
     Active Substance: LAMOTRIGINE
     Dosage: 100 MG, BID
     Route: 048
  6. CYMBALTA [Suspect]
     Active Substance: DULOXETINE HYDROCHLORIDE
     Indication: PAIN
     Dosage: UNK, UNKNOWN
     Route: 048
     Dates: start: 2009
  7. CYMBALTA [Suspect]
     Active Substance: DULOXETINE HYDROCHLORIDE
     Dosage: 30 MG, QD
     Route: 048
     Dates: start: 20140408, end: 20140625

REACTIONS (27)
  - Nightmare [Unknown]
  - Vertigo [Unknown]
  - Dizziness [Unknown]
  - Paraesthesia [Unknown]
  - Sensory disturbance [Unknown]
  - Diarrhoea [Unknown]
  - Affect lability [Unknown]
  - Hypomania [Unknown]
  - Bipolar I disorder [Unknown]
  - Agitation [Unknown]
  - Lethargy [Unknown]
  - Withdrawal syndrome [Unknown]
  - Mood swings [Unknown]
  - Diabetes mellitus [Unknown]
  - Suicide attempt [Not Recovered/Not Resolved]
  - Nausea [Unknown]
  - Tinnitus [Unknown]
  - Dementia [Unknown]
  - Suicidal ideation [Unknown]
  - Dysphoria [Unknown]
  - Confusional state [Unknown]
  - Schizophrenia [Unknown]
  - Irritability [Unknown]
  - Sleep disorder [Unknown]
  - Insomnia [Unknown]
  - Hyperhidrosis [Unknown]
  - Anxiety [Unknown]

NARRATIVE: CASE EVENT DATE: 20121020
